FAERS Safety Report 9056648 (Version 1)
Quarter: 2013Q1

REPORT INFORMATION
  Report Type: Report from Study
  Country: DE (occurrence: DE)
  Receive Date: 20130204
  Receipt Date: 20130204
  Transmission Date: 20140127
  Serious: Yes (Hospitalization, Other)
  Sender: FDA-Public Use
  Company Number: DE-PFIZER INC-HQWYE558005MAY05

PATIENT
  Age: 46 Year
  Sex: Male
  Weight: 85.3 kg

DRUGS (162)
  1. SIROLIMUS [Suspect]
     Indication: PROPHYLAXIS AGAINST TRANSPLANT REJECTION
     Dosage: 9.0 MG, 1X/DAY
     Route: 048
     Dates: start: 20040927, end: 20040927
  2. SIROLIMUS [Suspect]
     Dosage: 3 MG, 1X/DAY
     Route: 048
     Dates: start: 20040928
  3. SIROLIMUS [Suspect]
     Dosage: 2 MG, 1X/DAY
     Route: 048
     Dates: start: 20041027
  4. SIROLIMUS [Suspect]
     Dosage: 2 MG, ALTERNATE DAY
     Route: 048
     Dates: start: 20041112, end: 20050819
  5. SIROLIMUS [Suspect]
     Dosage: 3 MG, 1X/DAY
     Route: 048
     Dates: start: 20041224, end: 20050105
  6. SIROLIMUS [Suspect]
     Dosage: 2 MG, 1X/DAY
     Route: 048
     Dates: start: 20050106
  7. SIROLIMUS [Suspect]
     Dosage: 10 MG, WEEKLY
     Route: 048
     Dates: start: 20050115
  8. SIROLIMUS [Suspect]
     Dosage: 1 MG, 1X/DAY
     Route: 048
     Dates: start: 20050127
  9. SIROLIMUS [Suspect]
     Dosage: 2 MG, ALTERNATE DAY
     Route: 048
     Dates: start: 20050411
  10. SIROLIMUS [Suspect]
     Dosage: 3 MG, 1X/DAY
     Route: 048
     Dates: start: 20050604
  11. SIROLIMUS [Suspect]
     Dosage: 2 MG, 1X/DAY
     Route: 048
     Dates: start: 20050715, end: 20050723
  12. SIROLIMUS [Suspect]
     Dosage: 1 MG, 1X/DAY
     Route: 048
     Dates: start: 20050728
  13. SIROLIMUS [Suspect]
     Dosage: 1 MG, 1X/DAY
     Route: 048
     Dates: start: 20050820
  14. SIROLIMUS [Suspect]
     Dosage: 1 MG, ALTERNATE DAY
     Route: 048
     Dates: start: 20050826
  15. SIROLIMUS [Suspect]
     Dosage: 1 MG, 1X/DAY
     Route: 048
     Dates: start: 20050829
  16. MYCOPHENOLATE MOFETIL [Suspect]
     Dosage: 1000 MG,1X/DAY
     Route: 048
     Dates: start: 20040927, end: 20040927
  17. MYCOPHENOLATE MOFETIL [Suspect]
     Dosage: 1000 MG, 2X/DAY
     Route: 048
     Dates: start: 20040928, end: 20040928
  18. MYCOPHENOLATE MOFETIL [Suspect]
     Dosage: 1000 MG, 1X/DAY
     Route: 048
     Dates: start: 20040929, end: 20040929
  19. MYCOPHENOLATE MOFETIL [Suspect]
     Dosage: 500 MG, 1X/DAY
     Route: 048
     Dates: start: 20040929
  20. MYCOPHENOLATE MOFETIL [Suspect]
     Dosage: 1000 MG, 2X/DAY
     Route: 048
     Dates: start: 20041002, end: 20041002
  21. MYCOPHENOLATE MOFETIL [Suspect]
     Dosage: 250 MG, 1X/DAY
     Route: 048
     Dates: start: 20041003, end: 20041003
  22. MYCOPHENOLATE MOFETIL [Suspect]
     Dosage: 1000 MG, 1X/DAY
     Route: 048
     Dates: start: 20041003
  23. MYCOPHENOLATE MOFETIL [Suspect]
     Dosage: 1000 MG, 2X/DAY
     Route: 048
     Dates: start: 20041005
  24. MYCOPHENOLATE MOFETIL [Suspect]
     Dosage: 1000 MG, 1X/DAY
     Route: 048
     Dates: start: 20041007, end: 20041007
  25. MYCOPHENOLATE MOFETIL [Suspect]
     Dosage: 250 MG, 1X/DAY
     Route: 048
     Dates: start: 20041007, end: 20041007
  26. MYCOPHENOLATE MOFETIL [Suspect]
     Dosage: 1000 MG, 1X/DAY
     Route: 048
     Dates: start: 20041008, end: 20041008
  27. MYCOPHENOLATE MOFETIL [Suspect]
     Dosage: 250 MG, 1X/DAY
     Route: 048
     Dates: start: 20041008, end: 20041008
  28. MYCOPHENOLATE MOFETIL [Suspect]
     Dosage: 1000 MG, 2X/DAY
     Route: 048
     Dates: start: 20041009
  29. MYCOPHENOLATE MOFETIL [Suspect]
     Dosage: 250 MG, 2X/DAY
     Route: 048
     Dates: start: 20050714, end: 20050719
  30. CIPROFLOXACIN [Suspect]
     Dosage: 250.0 MG, 2X/DAY
     Route: 048
     Dates: start: 20050119, end: 20050225
  31. CIPROFLOXACIN [Suspect]
     Dosage: 250 MG, 2X/DAY
     Route: 048
     Dates: start: 20050330, end: 20050411
  32. RAMIPRIL [Suspect]
     Dosage: 2.5 MG, 1X/DAY
     Route: 048
     Dates: start: 20041003, end: 20041003
  33. RAMIPRIL [Suspect]
     Dosage: 2.5 MG, 2X/DAY
     Route: 048
     Dates: start: 20041004, end: 20041004
  34. RAMIPRIL [Suspect]
     Dosage: 5 MG, 1X/DAY
     Route: 048
     Dates: start: 20041005, end: 20041006
  35. RAMIPRIL [Suspect]
     Dosage: 2.5 MG, 1X/DAY
     Route: 048
     Dates: start: 20041007, end: 20050411
  36. PREDNISOLONE [Suspect]
     Dosage: 100 MG, 1X/DAY
     Route: 042
     Dates: start: 20040927, end: 20040927
  37. PREDNISOLONE [Suspect]
     Dosage: 250 MG, 1X/DAY
     Route: 042
     Dates: start: 20041223, end: 20041226
  38. PREDNISOLONE [Suspect]
     Dosage: 250 MG, 1X/DAY
     Route: 042
     Dates: start: 20050217, end: 20050220
  39. PREDNISOLONE [Suspect]
     Dosage: 750 MG, 1X/DAY
     Route: 042
     Dates: start: 20050411
  40. PREDNISOLONE [Suspect]
     Dosage: 100 MG, 1X/DAY
     Route: 042
     Dates: start: 20050412
  41. PREDNISOLONE [Suspect]
     Dosage: 250 MG, 1X/DAY
     Dates: start: 20050623, end: 20050628
  42. PREDNISOLONE [Suspect]
     Dosage: 75 MG, 1X/DAY
     Route: 048
     Dates: start: 20040928
  43. PREDNISOLONE [Suspect]
     Dosage: 65 MG, 1X/DAY
     Route: 048
     Dates: start: 20040930, end: 20041002
  44. PREDNISOLONE [Suspect]
     Dosage: 5 MG, 1X/DAY
     Route: 048
     Dates: start: 20041003
  45. PREDNISOLONE [Suspect]
     Dosage: 50 MG, 1X/DAY
     Route: 048
     Dates: start: 20041007, end: 20041007
  46. PREDNISOLONE [Suspect]
     Dosage: 10 MG, 1X/DAY
     Route: 048
     Dates: start: 20041008
  47. PREDNISOLONE [Suspect]
     Dosage: 80 MG, 2X/DAY
     Route: 048
     Dates: start: 20041222, end: 20041222
  48. PREDNISOLONE [Suspect]
     Dosage: 90 MG, 1X/DAY
     Route: 048
     Dates: start: 20041226
  49. PREDNISOLONE [Suspect]
     Dosage: 85 MG, 1X/DAY
     Route: 048
     Dates: start: 20041231
  50. PREDNISOLONE [Suspect]
     Dosage: 40 MG, 1X/DAY
     Route: 048
     Dates: start: 20050102
  51. PREDNISOLONE [Suspect]
     Dosage: 50 MG, 1X/DAY
     Dates: start: 20050217
  52. PREDNISOLONE [Suspect]
     Dosage: 7.5 MG, 1X/DAY
     Route: 048
     Dates: start: 20050224
  53. PREDNISOLONE [Suspect]
     Dosage: 25 MG, 1X/DAY
     Route: 048
     Dates: start: 20050510
  54. PREDNISOLONE [Suspect]
     Dosage: DOSE TAPERED BETWEEN 12.5 MG TO 30 MG RANGE
     Route: 048
     Dates: start: 20050525
  55. PREDNISOLONE [Suspect]
     Dosage: 40 MG, 1X/DAY
     Route: 048
     Dates: start: 20120628
  56. PREDNISOLONE [Suspect]
     Dosage: 20 MG, 1X/DAY
     Route: 048
     Dates: start: 20050714
  57. DACLIZUMAB [Suspect]
     Dosage: 150 MG, 1X/DAY
     Route: 042
     Dates: start: 20040927, end: 20040927
  58. DACLIZUMAB [Suspect]
     Dosage: 75 MG, EVERY 2 WEEKS
     Route: 042
     Dates: start: 20041011, end: 20041123
  59. DACLIZUMAB [Suspect]
     Dosage: UNK
     Route: 048
     Dates: start: 20041123, end: 20041123
  60. ACETYLCYSTEINE [Concomitant]
     Dosage: 600 MG, 1X/DAY
     Route: 048
     Dates: start: 20041006, end: 20041016
  61. ACICLOVIR CREAM [Concomitant]
     Dosage: UNK
     Route: 062
     Dates: start: 20050108, end: 20050114
  62. AMIODARONE [Concomitant]
     Dosage: 300 MG, 1X/DAY
     Route: 048
     Dates: start: 20040930
  63. AMIODARONE [Concomitant]
     Dosage: 200 MG, 1X/DAY
     Route: 048
     Dates: start: 20041003, end: 20041006
  64. AMLODIPINE [Concomitant]
     Dosage: 5 MG, 1X/DAY
     Route: 048
     Dates: start: 20040930
  65. AMLODIPINE [Concomitant]
     Dosage: 5 MG, 1X/DAY
     Route: 048
     Dates: start: 20041004, end: 20041006
  66. AMLODIPINE [Concomitant]
     Dosage: 5 MG, 1X/DAY
     Route: 048
     Dates: start: 20041007
  67. AMLODIPINE [Concomitant]
     Dosage: 10 MG, 2X/DAY
     Route: 048
     Dates: start: 20041009
  68. AMLODIPINE [Concomitant]
     Dosage: 5 MG, 2X/DAY
     Route: 048
     Dates: start: 20050724
  69. AMPHOTERICIN B [Concomitant]
     Dosage: 1 ML, 2X/DAY
     Route: 048
     Dates: start: 20040928, end: 20040928
  70. AMPHOTERICIN B [Concomitant]
     Dosage: 2 ML, 3X/DAY
     Route: 048
     Dates: start: 20040929, end: 20040929
  71. AMPHOTERICIN B [Concomitant]
     Dosage: 2 ML, 1X/DAY
     Route: 048
     Dates: start: 20040930
  72. AMPHOTERICIN B [Concomitant]
     Dosage: 2 ML, 3X/DAY
     Route: 048
     Dates: start: 20041003, end: 20041003
  73. AMPHOTERICIN B [Concomitant]
     Dosage: 2 ML, 1X/DAY
     Route: 048
     Dates: start: 20041004, end: 20041004
  74. AMPHOTERICIN B [Concomitant]
     Dosage: 2 ML, 4X/DAY
     Route: 048
     Dates: start: 20041005, end: 20041005
  75. AMPHOTERICIN B [Concomitant]
     Dosage: 2 ML, 1X/DAY
     Dates: start: 20041006, end: 20041006
  76. AMPHOTERICIN B [Concomitant]
     Dosage: 1 ML, 5X/DAY
     Route: 048
     Dates: start: 20041006
  77. AMPHOTERICIN B [Concomitant]
     Dosage: 1 ML, 1X/DAY
     Route: 048
     Dates: start: 20041008, end: 20041008
  78. AMPHOTERICIN B [Concomitant]
     Dosage: 2 ML, 6X/DAY
     Route: 048
     Dates: start: 20041009
  79. AMPHOTERICIN B [Concomitant]
     Dosage: 2 ML, 6X/DAY
     Dates: start: 20050621, end: 20050629
  80. ATORVASTATIN [Concomitant]
     Dosage: 10 MG, 1X/DAY
     Route: 048
     Dates: start: 20041113
  81. ATORVASTATIN [Concomitant]
     Dosage: 20 MG, 1X/DAY
     Route: 048
     Dates: start: 20050104, end: 20050406
  82. NEBACETIN [Concomitant]
     Dosage: 1 DF, 2X/DAY
     Route: 062
     Dates: start: 20050108, end: 20050115
  83. CEFUROXIME [Concomitant]
     Dosage: 750 MG, 2X/DAY
     Route: 042
     Dates: start: 20040928
  84. CEFUROXIME [Concomitant]
     Dosage: 750 MG, 1X/DAY
     Route: 042
     Dates: start: 20041001, end: 20041002
  85. CEFUROXIME [Concomitant]
     Dosage: 250 MG, 2X/DAY
     Route: 048
     Dates: start: 20041220, end: 20041229
  86. ZIENAM [Concomitant]
     Dosage: 500 MG, 3X/DAY
     Route: 065
     Dates: start: 20050719
  87. CLONIDINE [Concomitant]
     Dosage: 150 UG, 3X/DAY
     Route: 048
     Dates: start: 20041006
  88. CLONIDINE [Concomitant]
     Dosage: 300 UG, 1X/DAY
     Route: 048
     Dates: start: 20041008, end: 20041008
  89. CLONIDINE [Concomitant]
     Dosage: 150 UG, 2X/DAY
     Route: 048
     Dates: start: 20041008, end: 20041008
  90. CLONIDINE [Concomitant]
     Dosage: 300 UG, 3X/DAY
     Route: 048
     Dates: start: 20041009
  91. CLONIDINE [Concomitant]
     Dosage: 150 UG, 4X/DAY
     Route: 048
     Dates: start: 20041016, end: 20050118
  92. CLONIDINE [Concomitant]
     Dosage: 150 MG, 4X/DAY
     Route: 048
     Dates: start: 20050411
  93. CLONIDINE [Concomitant]
     Dosage: 150 MG, 3X/DAY
     Route: 048
     Dates: start: 20050730
  94. DIHYDRALAZINE SULFATE [Concomitant]
     Dosage: 0.69 MG, 24X/DAY
     Route: 042
     Dates: start: 20040930, end: 20040930
  95. DIHYDRALAZINE SULFATE [Concomitant]
     Dosage: 1.5 MG, 1X/DAY
     Route: 042
     Dates: start: 20041001
  96. DIHYDRALAZINE SULFATE [Concomitant]
     Dosage: 12.5 MG, 2X/DAY
     Route: 048
     Dates: start: 20050725, end: 20050725
  97. DIHYDRALAZINE SULFATE [Concomitant]
     Dosage: 12.5 MG, 3X/DAY
     Route: 048
     Dates: start: 20050726
  98. DIHYDRALAZINE SULFATE [Concomitant]
     Dosage: 25 MG, 3X/DAY
     Route: 048
     Dates: start: 20050815
  99. DARBEPOETIN ALFA [Concomitant]
     Dosage: 40 MG, WEEKLY
     Route: 058
     Dates: start: 20050323
  100. DARBEPOETIN ALFA [Concomitant]
     Dosage: 60 MG, WEEKLY
     Route: 058
     Dates: start: 20050420
  101. DARBEPOETIN ALFA [Concomitant]
     Dosage: 40 MG, 1X/DAY
     Route: 042
     Dates: start: 20050604
  102. DARBEPOETIN ALFA [Concomitant]
     Dosage: 60 MG, WEEKLY, ROUTE: PV
     Dates: start: 20050621
  103. FUROSEMIDE [Concomitant]
     Dosage: 40 MG, 2X/DAY
     Route: 048
     Dates: start: 20040112
  104. FUROSEMIDE [Concomitant]
     Dosage: 20 MG, 1X/DAY
     Route: 048
     Dates: start: 20041024, end: 20041207
  105. FUROSEMIDE [Concomitant]
     Dosage: 20 MG, 1X/DAY
     Route: 048
     Dates: start: 20041213, end: 20041213
  106. FUROSEMIDE [Concomitant]
     Dosage: 20 MG, 2X/DAY
     Route: 048
     Dates: start: 20041214
  107. FUROSEMIDE [Concomitant]
     Dosage: 120 MG, 1X/DAY
     Route: 048
     Dates: start: 20041223, end: 20041223
  108. FUROSEMIDE [Concomitant]
     Dosage: 80 MG, 1X/DAY
     Route: 048
     Dates: start: 20041224
  109. FUROSEMIDE [Concomitant]
     Dosage: 160MG 1XDAY / 80MG 1X/DAY
     Route: 048
     Dates: start: 20041226, end: 20041226
  110. FUROSEMIDE [Concomitant]
     Dosage: 125 MG, 2X/DAY
     Route: 048
     Dates: start: 20041227, end: 20041227
  111. FUROSEMIDE [Concomitant]
     Dosage: 250MG 1X/DAY / 125MG 1X/DAY
     Route: 048
     Dates: start: 20041228, end: 20041228
  112. FUROSEMIDE [Concomitant]
     Dosage: 250 MG, 2X/DAY
     Route: 048
     Dates: start: 20041229
  113. FUROSEMIDE [Concomitant]
     Dosage: 20 MG, 2X/DAY
     Route: 048
     Dates: start: 20050105
  114. FUROSEMIDE [Concomitant]
     Dosage: 80 MG, 2X/DAY
     Route: 048
     Dates: start: 20050728
  115. FUROSEMIDE [Concomitant]
     Dosage: 125 MG, 2X/DAY
     Route: 048
     Dates: start: 20050817
  116. GANCICLOVIR [Concomitant]
     Dosage: 500 MG, 1X/DAY
     Route: 048
     Dates: start: 20050716, end: 20050720
  117. IMIPENEM [Concomitant]
     Dosage: 500 MG, 3X/DAY
     Route: 042
     Dates: start: 20050716, end: 20050729
  118. LEVOFLOXACIN [Concomitant]
     Dosage: 500 MG, 1X/DAY
     Route: 042
     Dates: start: 20041001, end: 20041013
  119. LEVOFLOXACIN [Concomitant]
     Dosage: 500 MG, 1X/DAY
     Route: 048
     Dates: start: 20041013, end: 20041016
  120. LORAZEPAM [Concomitant]
     Dosage: 1 G, 2X/DAY
     Route: 042
     Dates: start: 20040930
  121. METOPROLOL [Concomitant]
     Dosage: 47.5 MG, 1X/DAY
     Route: 048
     Dates: start: 20040928
  122. METOPROLOL [Concomitant]
     Dosage: 95 MG, 1X/DAY
     Route: 048
     Dates: start: 20041004, end: 20041004
  123. METOPROLOL [Concomitant]
     Dosage: 47.5 MG, 1X/DAY
     Route: 048
     Dates: start: 20041005
  124. METOPROLOL [Concomitant]
     Dosage: 95 MG, 2X/DAY
     Route: 048
     Dates: start: 20050128
  125. METOPROLOL [Concomitant]
     Dosage: 47.5 MG, 2X/DAY
     Route: 048
     Dates: start: 20050812
  126. MOXONIDINE [Concomitant]
     Dosage: 0.4 UG, 2X/DAY
     Route: 048
     Dates: start: 20050118, end: 20050411
  127. MOXONIDINE [Concomitant]
     Dosage: 0.2 UG, 1X/DAY
     Route: 048
     Dates: start: 20050720
  128. MOXONIDINE [Concomitant]
     Dosage: 0.2 UG, 2X/DAY
     Route: 048
     Dates: start: 20050722
  129. MOXONIDINE [Concomitant]
     Dosage: 15 MG, 1X/DAY
     Route: 048
     Dates: start: 20050823, end: 20050823
  130. KALINOR-BRAUSETABLETTEN [Concomitant]
     Dosage: 1 DF, 3X/DAY
     Route: 048
     Dates: start: 20040102
  131. KALINOR-BRAUSETABLETTEN [Concomitant]
     Dosage: 1 DF, 1X/DAY
     Route: 048
     Dates: start: 20041223
  132. KALINOR-BRAUSETABLETTEN [Concomitant]
     Dosage: 1 DF, 2X/DAY
     Route: 048
     Dates: start: 20050103, end: 20050104
  133. KALINOR-BRAUSETABLETTEN [Concomitant]
     Dosage: 2 DF, 1X/DAY
     Route: 048
     Dates: start: 20050105, end: 20050105
  134. KALINOR-BRAUSETABLETTEN [Concomitant]
     Dosage: 1 DF, 2X/DAY
     Route: 048
     Dates: start: 20050106, end: 20050204
  135. SIMVASTATIN [Concomitant]
     Dosage: 20 MG, 1X/DAY, ROUTE: PR
     Route: 048
     Dates: start: 20050406, end: 20050617
  136. SIMVASTATIN [Concomitant]
     Dosage: 10 MG, 1X/DAY
     Route: 048
     Dates: start: 20050622
  137. SIMVASTATIN [Concomitant]
     Dosage: 40 MG, 1X/DAY
     Route: 048
     Dates: start: 20050728
  138. SIMVASTATIN [Concomitant]
     Dosage: 20 MG, 1X/DAY
     Route: 048
     Dates: start: 20050812
  139. TAZOBAC [Concomitant]
     Dosage: 4.5 G, 3X/DAY
     Route: 048
     Dates: start: 20050113, end: 20050128
  140. TAZOBAC [Concomitant]
     Dosage: 4.5 G, 2X/DAY
     Route: 042
     Dates: start: 20050715, end: 20050717
  141. TAZOBAC [Concomitant]
     Dosage: 4.5 G, 2X/DAY
     Route: 048
     Dates: start: 20120715, end: 20120715
  142. URAPIDIL [Concomitant]
     Dosage: 2 MG, 2X/DAY
     Route: 042
     Dates: start: 20040928, end: 20040928
  143. URAPIDIL [Concomitant]
     Dosage: 1 MG, 5X/DAY
     Route: 042
     Dates: start: 20040928, end: 20040928
  144. URAPIDIL [Concomitant]
     Dosage: 6.25 MG, 24X/DAY
     Route: 042
     Dates: start: 20040929
  145. URAPIDIL [Concomitant]
     Dosage: 30 MG, 11XDAY
     Route: 042
     Dates: start: 20041003, end: 20041003
  146. URAPIDIL [Concomitant]
     Dosage: 30 MG, 12XDAY
     Route: 042
     Dates: start: 20041004, end: 20041004
  147. URAPIDIL [Concomitant]
     Dosage: 30 MG, 6X/DAY
     Route: 042
     Dates: start: 20041006, end: 20041006
  148. URAPIDIL [Concomitant]
     Dosage: 25 MG, 1X/DAY
     Dates: start: 20041007, end: 20041008
  149. VORICONAZOLE [Concomitant]
     Dosage: 200 MG, 1X/DAY
     Route: 048
     Dates: start: 20050716, end: 20050716
  150. VORICONAZOLE [Concomitant]
     Dosage: 200 MG, 2X/DAY
     Route: 048
     Dates: start: 20050717, end: 20050726
  151. VORICONAZOLE [Concomitant]
     Dosage: 400 MG, 1X/DAY
     Route: 048
     Dates: start: 20050811
  152. VORICONAZOLE [Concomitant]
     Dosage: 200 MG, 2X/DAY
     Route: 048
     Dates: start: 20050812, end: 20050920
  153. ROXITHROMYCIN [Concomitant]
     Dosage: 300 MG, 1X/DAY
     Route: 048
     Dates: start: 20050714, end: 20050721
  154. ROXITHROMYCIN [Concomitant]
     Dosage: 300 MG, 1X/DAY
     Route: 048
     Dates: start: 20050722, end: 20050730
  155. ROXITHROMYCIN [Concomitant]
     Dosage: 100 MG, 2X/DAY
     Route: 048
     Dates: start: 20050819
  156. FUROSEMIDE [Concomitant]
     Dosage: 20 MG, 2X/DAY
     Route: 042
     Dates: start: 20040901
  157. FUROSEMIDE [Concomitant]
     Dosage: 20 MG, 1X/DAY
     Route: 042
     Dates: start: 20040928, end: 20041002
  158. FUROSEMIDE [Concomitant]
     Dosage: 20 MG, 2X/DAY
     Route: 042
     Dates: start: 20041003
  159. MOXIFLOXACIN [Concomitant]
     Dosage: 400 MG, 1X/DAY
     Route: 048
     Dates: start: 20050811, end: 20050823
  160. URAPIDIL [Concomitant]
     Dosage: 90 MG, 2X/DAY
     Route: 048
     Dates: start: 20041005
  161. URAPIDIL [Concomitant]
     Dosage: 90 MG, 2X/DAY
     Route: 048
     Dates: start: 20041007, end: 20041007
  162. URAPIDIL [Concomitant]
     Dosage: 90 MG, 3X/DAY
     Route: 048
     Dates: start: 20041008

REACTIONS (9)
  - Lymphocele [Recovered/Resolved]
  - Blood creatinine increased [Recovered/Resolved]
  - Angioedema [Recovered/Resolved]
  - Pneumonia [Recovered/Resolved]
  - Condition aggravated [Recovered/Resolved]
  - Dehydration [Recovered/Resolved]
  - Urinary retention [Recovered/Resolved]
  - Lymphocele [Recovered/Resolved]
  - Lymphocele [Recovered/Resolved]
